FAERS Safety Report 8304671-9 (Version None)
Quarter: 2012Q2

REPORT INFORMATION
  Report Type: 
  Country: None (occurrence: None)
  Receive Date: 20120423
  Receipt Date: 20120412
  Transmission Date: 20120825
  Serious: Yes (Life-Threatening, Hospitalization)
  Sender: FDA-Public Use
  Company Number: FR-MPIJNJ-2011-06018

PATIENT

DRUGS (14)
  1. DEXAMETHASONE ACETATE [Suspect]
     Indication: MULTIPLE MYELOMA
     Dosage: 20 MG, UNK
     Route: 048
     Dates: start: 20110424
  2. SODIUM BICARBONATE [Concomitant]
     Dosage: 1 DF, UNK
     Route: 048
  3. VELCADE [Suspect]
     Indication: MULTIPLE MYELOMA
     Dosage: 1 MG/M2, UNK
     Route: 042
     Dates: start: 20100101, end: 20111001
  4. BISOPROLOL FUMARATE [Concomitant]
     Indication: CARDIAC FAILURE
     Dosage: 1.25 MG, UNK
     Route: 048
  5. BACTRIM [Concomitant]
     Dosage: 0.5 DF, 3/WEEK
     Route: 048
  6. BRICANYL [Concomitant]
     Dosage: 1 DF, TID
  7. TRANSIPEG                          /00754501/ [Concomitant]
     Dosage: 1 DF, UNK
     Route: 048
  8. COUMADIN [Concomitant]
     Dosage: 2 MG, UNK
     Route: 048
  9. NEXIUM [Concomitant]
     Dosage: 20 MG, UNK
     Route: 048
  10. STILNOX                            /00914901/ [Concomitant]
     Dosage: 10 MG, UNK
     Route: 048
  11. XATRAL                             /00975301/ [Concomitant]
     Dosage: 10 MG, UNK
     Route: 048
  12. ALKERAN [Concomitant]
     Indication: MULTIPLE MYELOMA
     Dosage: 0.15 MG/KG, UNK
     Dates: start: 20090701
  13. CORDARONE [Concomitant]
     Dosage: 200 MG, UNK
     Route: 048
  14. LASIX [Concomitant]
     Indication: CARDIAC FAILURE
     Dosage: 40 MG, UNK
     Route: 048

REACTIONS (1)
  - SYSTOLIC DYSFUNCTION [None]
